FAERS Safety Report 7249131-1 (Version None)
Quarter: 2011Q1

REPORT INFORMATION
  Report Type: 
  Country: None (occurrence: None)
  Receive Date: 20110128
  Receipt Date: 20101130
  Transmission Date: 20110831
  Serious: Yes (Death)
  Sender: FDA-Public Use
  Company Number: DE-BAYER-2010-002035

PATIENT
  Sex: Male
  Weight: 1.1 kg

DRUGS (2)
  1. ASPIRIN [Suspect]
     Indication: DRUG EXPOSURE DURING PREGNANCY
     Dosage: UNK UNK, QD
     Route: 064
     Dates: start: 20091001
  2. ENBREL [Suspect]
     Indication: DRUG EXPOSURE DURING PREGNANCY
     Dosage: UNK
     Route: 050
     Dates: start: 20080401

REACTIONS (3)
  - MULTI-ORGAN FAILURE [None]
  - MULTI-ORGAN DISORDER [None]
  - CEREBRAL HAEMORRHAGE [None]
